FAERS Safety Report 8465300-7 (Version None)
Quarter: 2012Q2

REPORT INFORMATION
  Report Type: 
  Country: None (occurrence: None)
  Receive Date: 20120626
  Receipt Date: 20120615
  Transmission Date: 20120825
  Serious: Yes (Other)
  Sender: FDA-Public Use
  Company Number: IT-PFIZER INC-2012144202

PATIENT
  Age: 59 Year
  Sex: Female

DRUGS (2)
  1. NOLVADEX [Concomitant]
     Dosage: UNK
     Dates: start: 20010101
  2. AROMASIN [Suspect]
     Indication: BREAST CANCER
     Dosage: UNK
     Dates: start: 20040101

REACTIONS (1)
  - LYMPHADENOPATHY [None]
